FAERS Safety Report 7492731-4 (Version None)
Quarter: 2011Q2

REPORT INFORMATION
  Report Type: 
  Country: None (occurrence: None)
  Receive Date: 20110519
  Receipt Date: 20110513
  Transmission Date: 20111010
  Serious: Yes (Other)
  Sender: FDA-Public Use
  Company Number: JP-MERCK-1102USA01151

PATIENT
  Age: 81 Year
  Sex: Female
  Weight: 49 kg

DRUGS (3)
  1. OLMESARTAN MEDOXOMIL [Concomitant]
     Indication: HYPERTENSION
     Route: 048
     Dates: start: 20080206
  2. ARICEPT [Concomitant]
     Indication: DEMENTIA
     Route: 048
     Dates: start: 20080206
  3. JANUVIA [Suspect]
     Indication: DIABETES MELLITUS
     Route: 048
     Dates: start: 20100319

REACTIONS (3)
  - OEDEMA PERIPHERAL [None]
  - MUSCULOSKELETAL STIFFNESS [None]
  - ARTHRALGIA [None]
